FAERS Safety Report 7764901-9 (Version None)
Quarter: 2011Q3

REPORT INFORMATION
  Report Type: 
  Country: None (occurrence: None)
  Receive Date: 20110921
  Receipt Date: 20110912
  Transmission Date: 20111222
  Serious: Yes (Hospitalization, Other)
  Sender: FDA-Public Use
  Company Number: US-BAYER-2011-026274

PATIENT
  Age: 30 Year
  Sex: Female
  Weight: 60.771 kg

DRUGS (8)
  1. ASCORBIC ACID [Concomitant]
     Dosage: UNK
     Dates: start: 20000101
  2. YAZ [Suspect]
     Indication: CONTRACEPTION
     Dosage: UNK
     Route: 048
     Dates: start: 20080830, end: 20090530
  3. NSAID'S [Concomitant]
     Dosage: UNK
     Dates: start: 20000101
  4. TANDEM [Concomitant]
     Indication: IRON DEFICIENCY
     Dosage: UNK
     Dates: start: 20090101, end: 20100101
  5. DROSPIRENONE AND ETHINYL ESTRADIOL [Suspect]
     Indication: CONTRACEPTION
     Dosage: UNK
     Route: 048
     Dates: start: 20090530, end: 20091114
  6. CHONDROITIN SULFATE [Concomitant]
  7. GLUCOSAMINE [GLUCOSAMINE] [Concomitant]
  8. LORTAB [Concomitant]
     Indication: PAIN

REACTIONS (2)
  - GALLBLADDER DISORDER [None]
  - BILIARY DYSKINESIA [None]
